FAERS Safety Report 16482893 (Version 1)
Quarter: 2019Q2

REPORT INFORMATION
  Report Type: Spontaneous
  Country: SE (occurrence: SE)
  Receive Date: 20190627
  Receipt Date: 20190627
  Transmission Date: 20190711
  Serious: Yes (Hospitalization)
  Sender: FDA-Public Use
  Company Number: SE-TEVA-2019-SE-1069922

PATIENT
  Age: 21 Year
  Sex: Female

DRUGS (4)
  1. ATARAX [Suspect]
     Active Substance: HYDROXYZINE HYDROCHLORIDE
     Dosage: 25 MG 7 ST- 175 MG
     Dates: start: 20190317, end: 20190317
  2. ESCITALOPRAM [Suspect]
     Active Substance: ESCITALOPRAM OXALATE
     Dosage: 25 MG
     Dates: start: 20190317, end: 20190317
  3. LERGIGAN (PROMETHAZINE HYDROCHLORIDE) [Suspect]
     Active Substance: PROMETHAZINE HYDROCHLORIDE
     Dosage: 7 ST 25 MG - 125 MG
     Route: 048
     Dates: start: 20190317, end: 20190317
  4. PROPAVAN [Suspect]
     Active Substance: PROPIOMAZINE
     Dosage: 5 ST -25 MG - 125 MG

REACTIONS (2)
  - Dizziness [Unknown]
  - Accidental overdose [Unknown]

NARRATIVE: CASE EVENT DATE: 20190317
